FAERS Safety Report 12190063 (Version 10)
Quarter: 2022Q2

REPORT INFORMATION
  Report Type: Other
  Country: CA (occurrence: None)
  Receive Date: 20160318
  Receipt Date: 20220429
  Transmission Date: 20220721
  Serious: Yes (Other)
  Sender: FDA-Public Use
  Company Number: CA-ROCHE-1570622

PATIENT
  Age: 76 Year
  Sex: Female
  Weight: 72 kg

DRUGS (29)
  1. ACTEMRA [Suspect]
     Active Substance: TOCILIZUMAB
     Indication: Rheumatoid arthritis
     Route: 042
     Dates: start: 20101123, end: 20101229
  2. ACTEMRA [Suspect]
     Active Substance: TOCILIZUMAB
     Route: 042
     Dates: start: 20110131, end: 20110405
  3. ACTEMRA [Suspect]
     Active Substance: TOCILIZUMAB
     Route: 042
     Dates: start: 20120216, end: 20120328
  4. ACTEMRA [Suspect]
     Active Substance: TOCILIZUMAB
     Route: 042
     Dates: start: 20120425, end: 20120910
  5. ACTEMRA [Suspect]
     Active Substance: TOCILIZUMAB
     Route: 042
     Dates: start: 20121017
  6. ACTEMRA [Suspect]
     Active Substance: TOCILIZUMAB
     Route: 042
     Dates: start: 20140501
  7. ACTEMRA [Suspect]
     Active Substance: TOCILIZUMAB
     Route: 042
     Dates: start: 20141201
  8. ACTEMRA [Suspect]
     Active Substance: TOCILIZUMAB
     Route: 042
     Dates: start: 20150825
  9. ACTEMRA [Suspect]
     Active Substance: TOCILIZUMAB
     Route: 042
     Dates: start: 20150507
  10. ACTEMRA [Suspect]
     Active Substance: TOCILIZUMAB
     Route: 042
     Dates: start: 20151217
  11. ACTEMRA [Suspect]
     Active Substance: TOCILIZUMAB
     Route: 042
     Dates: start: 20171018
  12. ACTEMRA [Suspect]
     Active Substance: TOCILIZUMAB
     Route: 042
     Dates: start: 2016, end: 2020
  13. ACTEMRA [Suspect]
     Active Substance: TOCILIZUMAB
     Route: 042
     Dates: start: 2016, end: 2016
  14. ACTEMRA [Suspect]
     Active Substance: TOCILIZUMAB
     Route: 042
     Dates: start: 2015, end: 2015
  15. ACTEMRA [Suspect]
     Active Substance: TOCILIZUMAB
     Route: 042
     Dates: start: 20110503, end: 20110706
  16. ACTEMRA [Suspect]
     Active Substance: TOCILIZUMAB
     Route: 042
     Dates: start: 20110803, end: 20111228
  17. ACTEMRA [Suspect]
     Active Substance: TOCILIZUMAB
     Route: 042
     Dates: start: 2014
  18. ACTEMRA [Suspect]
     Active Substance: TOCILIZUMAB
     Route: 042
     Dates: start: 2015, end: 2015
  19. ACTEMRA [Suspect]
     Active Substance: TOCILIZUMAB
     Route: 042
     Dates: start: 2018
  20. FOSAMAX [Concomitant]
     Active Substance: ALENDRONATE SODIUM
  21. LEVOTHYROXINE [Concomitant]
     Active Substance: LEVOTHYROXINE
  22. NAPROXEN [Concomitant]
     Active Substance: NAPROXEN
  23. FOSAVANCE [Concomitant]
     Active Substance: ALENDRONATE SODIUM\CHOLECALCIFEROL
  24. NEXIUM [Concomitant]
     Active Substance: ESOMEPRAZOLE MAGNESIUM
  25. VITAMIN C [Concomitant]
     Active Substance: ASCORBIC ACID
  26. OMEGA 3 [Concomitant]
     Active Substance: CAPSAICIN
  27. FOLIC ACID [Concomitant]
     Active Substance: FOLIC ACID
  28. ALEVE [Concomitant]
     Active Substance: NAPROXEN SODIUM
  29. CALCIUM [Concomitant]
     Active Substance: CALCIUM

REACTIONS (9)
  - Ill-defined disorder [Recovered/Resolved]
  - Infection [Unknown]
  - Weight decreased [Recovering/Resolving]
  - Abdominal pain upper [Recovered/Resolved]
  - Upper respiratory tract infection [Recovered/Resolved]
  - Urinary tract infection [Recovered/Resolved]
  - Abdominal pain lower [Unknown]
  - Bronchitis [Recovered/Resolved]
  - Rash pruritic [Unknown]

NARRATIVE: CASE EVENT DATE: 20151123
